FAERS Safety Report 22263546 (Version 1)
Quarter: 2023Q2

REPORT INFORMATION
  Report Type: Spontaneous
  Country: US (occurrence: US)
  Receive Date: 20230428
  Receipt Date: 20230428
  Transmission Date: 20230722
  Serious: Yes (Death, Hospitalization, Other)
  Sender: FDA-Public Use
  Company Number: US-Nexus Pharma-000192

PATIENT
  Age: 55 Year
  Sex: Male

DRUGS (1)
  1. MINOCYCLINE [Suspect]
     Active Substance: MINOCYCLINE HYDROCHLORIDE
     Indication: Osteomyelitis chronic

REACTIONS (7)
  - Drug-induced liver injury [Fatal]
  - Respiratory failure [Unknown]
  - Anaemia [Unknown]
  - Acute kidney injury [Unknown]
  - Thrombocytopenia [Unknown]
  - Metabolic encephalopathy [Unknown]
  - Off label use [Unknown]
